FAERS Safety Report 4433853-1 (Version None)
Quarter: 2004Q3

REPORT INFORMATION
  Report Type: 
  Country: None (occurrence: None)
  Receive Date: 20040826
  Receipt Date: 20040413
  Transmission Date: 20050211
  Serious: Yes (Hospitalization)
  Sender: FDA-Public Use
  Company Number: US-GLAXOSMITHKLINE-A0506878A

PATIENT
  Age: 59 Year
  Sex: Male
  Weight: 118.9 kg

DRUGS (9)
  1. TOPOTECAN [Suspect]
     Indication: SMALL CELL LUNG CANCER STAGE UNSPECIFIED
     Dosage: .5MG TWICE PER DAY
     Route: 048
     Dates: start: 20040218, end: 20040310
  2. RADIATION [Suspect]
     Indication: SMALL CELL LUNG CANCER STAGE UNSPECIFIED
     Dosage: 1.5GY TWICE PER DAY
     Dates: start: 20040218, end: 20040310
  3. CISPLATIN [Suspect]
     Indication: SMALL CELL LUNG CANCER STAGE UNSPECIFIED
     Dosage: 60MGM2 SINGLE DOSE
     Route: 042
     Dates: start: 20040315, end: 20040315
  4. ETOPOSIDE [Suspect]
     Indication: SMALL CELL LUNG CANCER STAGE UNSPECIFIED
     Dosage: 120MG PER DAY
     Route: 042
     Dates: start: 20040315, end: 20040317
  5. NYSTATIN [Concomitant]
     Indication: CANDIDIASIS
     Dosage: 5CC FOUR TIMES PER DAY
     Route: 048
     Dates: start: 20040303
  6. LIDOCAINE HCL VISCOUS [Concomitant]
     Indication: DYSPHAGIA
     Dosage: 10CC FOUR TIMES PER DAY
     Route: 048
     Dates: start: 20040308
  7. MORPHINE SULFATE [Concomitant]
     Indication: OESOPHAGITIS
     Dosage: 20MG AS REQUIRED
     Route: 048
  8. LIQUID DIET [Concomitant]
  9. FLUIDS [Concomitant]
     Route: 042

REACTIONS (6)
  - ACQUIRED OESOPHAGEAL WEB [None]
  - CANDIDIASIS [None]
  - DUODENITIS [None]
  - HAEMATOCRIT DECREASED [None]
  - HAEMOGLOBIN DECREASED [None]
  - RADIATION OESOPHAGITIS [None]
